FAERS Safety Report 7248337-5 (Version None)
Quarter: 2011Q1

REPORT INFORMATION
  Report Type: 
  Country: None (occurrence: None)
  Receive Date: 20110127
  Receipt Date: 20110119
  Transmission Date: 20110831
  Serious: Yes (Other)
  Sender: FDA-Public Use
  Company Number: PHHY2011US05275

PATIENT
  Sex: Female

DRUGS (1)
  1. ZORTRESS [Suspect]
     Dosage: 0.75 MG, BID

REACTIONS (1)
  - NEPHROTIC SYNDROME [None]
